FAERS Safety Report 16551477 (Version 4)
Quarter: 2021Q2

REPORT INFORMATION
  Report Type: Spontaneous
  Country: US (occurrence: US)
  Receive Date: 20190710
  Receipt Date: 20210629
  Transmission Date: 20210716
  Serious: Yes (Other)
  Sender: FDA-Public Use
  Company Number: US-GILEAD-2019-0417414

PATIENT
  Age: 23 Year
  Sex: Male
  Weight: 58.96 kg

DRUGS (42)
  1. ASPIRIN (E.C.) [Concomitant]
     Active Substance: ASPIRIN
  2. BACTRIM [Concomitant]
     Active Substance: SULFAMETHOXAZOLE\TRIMETHOPRIM
  3. RENA?VITE [Concomitant]
     Active Substance: ASCORBIC ACID\BIOTIN\CALCIUM PANTOTHENATE\CYANOCOBALAMIN\FOLIC ACID\NIACINAMIDE\PYRIDOXINE HYDROCHLORIDE\RIBOFLAVIN\THIAMINE MONONITRATE
  4. TRUVADA [Suspect]
     Active Substance: EMTRICITABINE\TENOFOVIR DISOPROXIL FUMARATE
     Indication: HIV INFECTION
     Dosage: UNK
     Route: 048
     Dates: start: 201406, end: 201612
  5. HYDRALAZINE [Concomitant]
     Active Substance: HYDRALAZINE HYDROCHLORIDE
  6. SYNTHROID [Concomitant]
     Active Substance: LEVOTHYROXINE SODIUM
  7. TYLENOL [Concomitant]
     Active Substance: ACETAMINOPHEN
  8. VANCOMYCIN [Concomitant]
     Active Substance: VANCOMYCIN
  9. JULUCA [Concomitant]
     Active Substance: DOLUTEGRAVIR SODIUM\RILPIVIRINE HYDROCHLORIDE
  10. NYSTATIN. [Concomitant]
     Active Substance: NYSTATIN
  11. ATENOLOL. [Concomitant]
     Active Substance: ATENOLOL
  12. PEPCID [Concomitant]
     Active Substance: FAMOTIDINE
  13. AMOXICILLIN. [Concomitant]
     Active Substance: AMOXICILLIN
  14. PRAVASTATIN. [Concomitant]
     Active Substance: PRAVASTATIN
  15. SEPTRA DS [Concomitant]
     Active Substance: SULFAMETHOXAZOLE\TRIMETHOPRIM
  16. CLONIDINE. [Concomitant]
     Active Substance: CLONIDINE
  17. NORVASC [Concomitant]
     Active Substance: AMLODIPINE BESYLATE
  18. KEPPRA [Concomitant]
     Active Substance: LEVETIRACETAM
  19. CEFTAZIDIME. [Concomitant]
     Active Substance: CEFTAZIDIME
  20. TAMIFLU [Concomitant]
     Active Substance: OSELTAMIVIR PHOSPHATE
  21. DAPSONE. [Concomitant]
     Active Substance: DAPSONE
  22. LIPITOR [Concomitant]
     Active Substance: ATORVASTATIN CALCIUM
  23. VITAMIN B COMPLEX [Concomitant]
     Active Substance: CYANOCOBALAMIN\DEXPANTHENOL\NIACINAMIDE\PYRIDOXINE HYDROCHLORIDE\RIBOFLAVIN 5^-PHOSPHATE SODIUM\THIAMINE HYDROCHLORIDE\VITAMIN B COMPLEX
  24. ATORVASTATIN [Concomitant]
     Active Substance: ATORVASTATIN
  25. AZITHROMYCIN ANHYDROUS. [Concomitant]
     Active Substance: AZITHROMYCIN ANHYDROUS
  26. LABETALOL [Concomitant]
     Active Substance: LABETALOL\LABETALOL HYDROCHLORIDE
  27. DIOVAN [Concomitant]
     Active Substance: VALSARTAN
  28. CALCITRIOL. [Concomitant]
     Active Substance: CALCITRIOL
  29. DIFLUCAN [Concomitant]
     Active Substance: FLUCONAZOLE
  30. VIREAD [Suspect]
     Active Substance: TENOFOVIR DISOPROXIL FUMARATE
     Dosage: UNK
     Route: 065
     Dates: start: 201206, end: 20160608
  31. GENVOYA [Concomitant]
     Active Substance: COBICISTAT\ELVITEGRAVIR\EMTRICITABINE\TENOFOVIR ALAFENAMIDE FUMARATE
  32. CARDURA [Concomitant]
     Active Substance: DOXAZOSIN MESYLATE
  33. PREDNISONE. [Concomitant]
     Active Substance: PREDNISONE
  34. PANTOPRAZOLE [Concomitant]
     Active Substance: PANTOPRAZOLE
  35. PREDNISOLONE. [Concomitant]
     Active Substance: PREDNISOLONE
  36. AVELOX [Concomitant]
     Active Substance: MOXIFLOXACIN HYDROCHLORIDE
  37. FORTAZ [Concomitant]
     Active Substance: CEFTAZIDIME SODIUM
  38. HECTOROL [Concomitant]
     Active Substance: DOXERCALCIFEROL
  39. VIREAD [Suspect]
     Active Substance: TENOFOVIR DISOPROXIL FUMARATE
     Indication: HIV INFECTION
     Dosage: UNK
     Route: 048
     Dates: start: 201206, end: 201405
  40. EMTRIVA [Concomitant]
     Active Substance: EMTRICITABINE
  41. TIVICAY [Concomitant]
     Active Substance: DOLUTEGRAVIR SODIUM
  42. SEVELAMER [Concomitant]
     Active Substance: SEVELAMER

REACTIONS (24)
  - Chronic kidney disease [Not Recovered/Not Resolved]
  - Anxiety [Unknown]
  - Pain [Unknown]
  - Dyspnoea [Unknown]
  - Glomerulosclerosis [Unknown]
  - Chronic kidney disease-mineral and bone disorder [Unknown]
  - Glomerular filtration rate decreased [Unknown]
  - Blood urea increased [Unknown]
  - Depression [Unknown]
  - End stage renal disease [Not Recovered/Not Resolved]
  - Humerus fracture [Unknown]
  - Anaemia [Unknown]
  - Joint swelling [Unknown]
  - Blood creatinine increased [Unknown]
  - Kidney fibrosis [Unknown]
  - Renal failure [Unknown]
  - Acute kidney injury [Unknown]
  - Effusion [Unknown]
  - Injury [Unknown]
  - Anhedonia [Unknown]
  - Economic problem [Unknown]
  - Hypertension [Unknown]
  - Emotional distress [Unknown]
  - Hypokinesia [Unknown]

NARRATIVE: CASE EVENT DATE: 20140212
